FAERS Safety Report 10365694 (Version 3)
Quarter: 2014Q4

REPORT INFORMATION
  Report Type: Spontaneous
  Country: US (occurrence: None)
  Receive Date: 20140804
  Receipt Date: 20141229
  Transmission Date: 20150528
  Serious: Yes (Other)
  Sender: FDA-Public Use
  Company Number: 2014-US-009336

PATIENT
  Age: 63 Year
  Sex: Female

DRUGS (1)
  1. XYREM [Suspect]
     Active Substance: SODIUM OXYBATE
     Indication: FIBROMYALGIA
     Route: 048
     Dates: start: 200511, end: 200601

REACTIONS (5)
  - Fibromyalgia [None]
  - Chest pain [None]
  - Headache [None]
  - Off label use [None]
  - Blood pressure increased [None]

NARRATIVE: CASE EVENT DATE: 20140724
